FAERS Safety Report 13569476 (Version 1)
Quarter: 2017Q2

REPORT INFORMATION
  Report Type: Spontaneous
  Country: US (occurrence: US)
  Receive Date: 20170522
  Receipt Date: 20170522
  Transmission Date: 20170830
  Serious: Yes (Other)
  Sender: FDA-Public Use
  Company Number: US-NOVOPROD-545545

PATIENT
  Age: 13 Year
  Sex: Male

DRUGS (4)
  1. FACTOR VIII RECOMBINANT [Concomitant]
     Active Substance: ANTIHEMOPHILIC FACTOR, HUMAN RECOMBINANT
     Dosage: 50 IU/KG
     Route: 065
  2. NOVOSEVEN [Suspect]
     Active Substance: COAGULATION FACTOR VIIA RECOMBINANT HUMAN
     Indication: FACTOR VIII DEFICIENCY
     Dosage: 90 ?G/KG EVERY 6 HRS
     Route: 065
  3. VON WILLEBRAND FACTOR [Concomitant]
     Active Substance: VON WILLEBRAND FACTOR HUMAN
     Dosage: 50 IU/KG
     Route: 065
  4. NOVOSEVEN [Suspect]
     Active Substance: COAGULATION FACTOR VIIA RECOMBINANT HUMAN
     Dosage: 20-25 ?G/KG
     Route: 065

REACTIONS (2)
  - Urinary bladder haemorrhage [Recovered/Resolved]
  - Renal infarct [Unknown]
